FAERS Safety Report 21344452 (Version 1)
Quarter: 2022Q3

REPORT INFORMATION
  Report Type: Other
  Country: US (occurrence: US)
  Receive Date: 20220916
  Receipt Date: 20220916
  Transmission Date: 20221026
  Serious: Yes (Other)
  Sender: FDA-Public Use
  Company Number: US-LEADIANT GMBH-2022STPI000221

PATIENT
  Sex: Male

DRUGS (1)
  1. MATULANE [Suspect]
     Active Substance: PROCARBAZINE HYDROCHLORIDE
     Indication: Astrocytoma
     Dosage: 100 MILLIGRAM DAILY
     Route: 048
     Dates: start: 20211230

REACTIONS (1)
  - Vomiting [Unknown]
